FAERS Safety Report 10050160 (Version 1)
Quarter: 2014Q2

REPORT INFORMATION
  Report Type: Spontaneous
  Country: JP (occurrence: JP)
  Receive Date: 20140401
  Receipt Date: 20140401
  Transmission Date: 20141212
  Serious: Yes (Death)
  Sender: FDA-Public Use
  Company Number: JP-MALLINCKRODT-T201401734

PATIENT
  Age: 67 Year
  Sex: Male

DRUGS (18)
  1. METHADONE [Suspect]
     Indication: CANCER PAIN
     Dosage: 15 MG TOTAL DAILY DOSE
     Route: 048
     Dates: start: 20131218, end: 20131225
  2. METHADONE [Suspect]
     Dosage: 20 MG TOTAL DAILY DOSE
     Route: 048
     Dates: start: 20131226, end: 20140103
  3. ANPEC [Concomitant]
     Dosage: UNK, PRN
     Route: 054
     Dates: start: 20131216
  4. MORPHINE HYDROCHLORIDE [Concomitant]
     Dosage: 100 MG
     Route: 051
     Dates: start: 20131218, end: 20131220
  5. MORPHINE HYDROCHLORIDE [Concomitant]
     Dosage: 150 MG
     Route: 051
     Dates: start: 20131220, end: 20131223
  6. MORPHINE HYDROCHLORIDE [Concomitant]
     Dosage: 190 MG
     Route: 051
     Dates: start: 20131223, end: 20131225
  7. MORPHINE HYDROCHLORIDE [Concomitant]
     Dosage: 250 MG
     Route: 051
     Dates: start: 20131225, end: 20131231
  8. MORPHINE HYDROCHLORIDE [Concomitant]
     Dosage: 270 MG
     Route: 051
     Dates: start: 20131231, end: 20140103
  9. MORPHINE HYDROCHLORIDE [Concomitant]
     Dosage: 150 MG
     Route: 051
     Dates: start: 20140103, end: 20140103
  10. KETALAR [Concomitant]
     Dosage: 100 MG
     Route: 042
     Dates: start: 20131218, end: 20131220
  11. KETALAR [Concomitant]
     Dosage: 50 MG
     Route: 042
     Dates: start: 20131220, end: 20131223
  12. LOXONIN [Concomitant]
     Dosage: 180 MG
     Route: 048
     Dates: end: 20140103
  13. PANTOSIN [Concomitant]
     Dosage: 600 MG
     Route: 048
     Dates: end: 20140103
  14. MAGLAX [Concomitant]
     Dosage: 990 MG
     Route: 048
     Dates: end: 20140103
  15. GABAPEN [Concomitant]
     Dosage: 1200 MG
     Route: 048
     Dates: end: 20140103
  16. TAKEPRON [Concomitant]
     Dosage: 30 MG
     Route: 048
     Dates: end: 20140103
  17. NEO VITACAIN [Concomitant]
     Dosage: 2 ML
     Route: 051
     Dates: end: 20131211
  18. DECADRON [Concomitant]
     Dosage: 3.3 MG
     Route: 051
     Dates: start: 20131225, end: 20140103

REACTIONS (1)
  - Colon cancer [Fatal]
